FAERS Safety Report 9990166 (Version 1)
Quarter: 2014Q1

REPORT INFORMATION
  Report Type: Spontaneous
  Country: US (occurrence: None)
  Receive Date: 20140123
  Receipt Date: 20140123
  Transmission Date: 20141002
  Serious: Yes (Hospitalization)
  Sender: FDA-Public Use
  Company Number: UTC-037138

PATIENT
  Age: 54 Year
  Sex: Male
  Weight: 122.3 kg

DRUGS (1)
  1. REMODULIN [Suspect]
     Indication: PULMONARY ARTERIAL HYPERTENSION
     Dosage: 95.04 UG/KG (0.066 UG/KG, 1 IN 1 MIN)
     Route: 058
     Dates: start: 20120820

REACTIONS (1)
  - Cellulitis [None]
